FAERS Safety Report 8135025-6 (Version None)
Quarter: 2012Q1

REPORT INFORMATION
  Report Type: 
  Country: None (occurrence: None)
  Receive Date: 20120214
  Receipt Date: 20120213
  Transmission Date: 20120608
  Serious: Yes (Other)
  Sender: FDA-Public Use
  Company Number: US-JNJFOC-20120204869

PATIENT
  Sex: Female
  Weight: 64.41 kg

DRUGS (4)
  1. LEVAQUIN [Suspect]
     Indication: STREPTOCOCCAL URINARY TRACT INFECTION
     Route: 048
     Dates: start: 20120108, end: 20120118
  2. XANAX [Concomitant]
     Route: 048
     Dates: start: 20110101
  3. EFFEXOR [Concomitant]
     Indication: DEPRESSION
     Route: 048
     Dates: start: 20110101
  4. DETROL LA [Concomitant]
     Indication: MICTURITION URGENCY
     Route: 048
     Dates: end: 20120113

REACTIONS (6)
  - FATIGUE [None]
  - MUSCLE SPASMS [None]
  - CRYING [None]
  - PAIN [None]
  - PARKINSONIAN GAIT [None]
  - GAIT DISTURBANCE [None]
